FAERS Safety Report 5958108-5 (Version None)
Quarter: 2008Q4

REPORT INFORMATION
  Report Type: 
  Country: None (occurrence: None)
  Receive Date: 20081119
  Receipt Date: 20081110
  Transmission Date: 20090506
  Serious: Yes (Other)
  Sender: FDA-Public Use
  Company Number: US-ABBOTT-08P-163-0487024-00

PATIENT
  Age: 47 Year
  Sex: Male

DRUGS (2)
  1. HUMIRA [Suspect]
     Indication: PSORIATIC ARTHROPATHY
     Route: 058
     Dates: start: 20050701, end: 20080801
  2. HUMIRA [Suspect]
     Route: 058
     Dates: start: 20080801, end: 20081001

REACTIONS (2)
  - MYOSCLEROSIS [None]
  - SPEECH DISORDER [None]
